FAERS Safety Report 8623818 (Version 3)
Quarter: 2013Q4

REPORT INFORMATION
  Report Type: Spontaneous
  Country: US (occurrence: US)
  Receive Date: 20120620
  Receipt Date: 20131129
  Transmission Date: 20140711
  Serious: Yes (Hospitalization, Other)
  Sender: FDA-Public Use
  Company Number: US-ASTRAZENECA-2012SE36484

PATIENT
  Age: 52 Year
  Sex: Female

DRUGS (9)
  1. NEXIUM [Suspect]
     Dosage: ONCE
     Route: 048
     Dates: start: 20081030
  2. NEXIUM [Suspect]
     Route: 048
     Dates: start: 20081217
  3. VITAMIN D [Concomitant]
  4. AMLODIPINE BESYLATE [Concomitant]
  5. SYNTHROID [Concomitant]
  6. SPIRONOLACTONE [Concomitant]
  7. HYZAAR [Concomitant]
     Dosage: 100-12.5 MGTABLET ONE ORLA DAILY
     Route: 048
     Dates: start: 20090202
  8. ARTHROTEC [Concomitant]
     Dosage: 75-200 MG MCG TABLET ONE ORAL TWO TIMES DALIY
     Route: 048
     Dates: start: 20090202
  9. ULTRAM [Concomitant]
     Dosage: 50 MG FOUR TIMES A DAY AS NEEDED.
     Route: 048

REACTIONS (6)
  - Lower limb fracture [Unknown]
  - Meniscus injury [Unknown]
  - Osteoporosis [Unknown]
  - Multiple fractures [Unknown]
  - Calcium deficiency [Unknown]
  - Arthritis [Unknown]
